FAERS Safety Report 14499002 (Version 1)
Quarter: 2018Q1

REPORT INFORMATION
  Report Type: Spontaneous
  Country: US (occurrence: US)
  Receive Date: 20180207
  Receipt Date: 20180207
  Transmission Date: 20180509
  Serious: No
  Sender: FDA-Public Use
  Company Number: US-TARO-2017TAR01077

PATIENT
  Sex: Male

DRUGS (1)
  1. FELBAMATE. [Suspect]
     Active Substance: FELBAMATE
     Dosage: UNK

REACTIONS (3)
  - Dizziness [Unknown]
  - Balance disorder [Unknown]
  - Drug ineffective [Unknown]
